FAERS Safety Report 8767310 (Version 1)
Quarter: 2012Q4

REPORT INFORMATION
  Report Type: 
  Country: US (occurrence: US)
  Receive Date: 20120907
  Receipt Date: 20120907
  Transmission Date: 20130627
  Serious: Yes (Life-Threatening, Hospitalization, Other)
  Sender: FDA-Public Use
  Company Number: PHEH2012US017147

PATIENT
  Age: 59 Year
  Sex: Female
  Weight: 51 kg

DRUGS (9)
  1. GILENYA [Suspect]
     Indication: MULTIPLE SCLEROSIS
     Dosage: 0.5 mg, QD
     Route: 048
     Dates: start: 20120815, end: 20120823
  2. ALENDRONATE SODIUM [Concomitant]
     Dosage: 70 mg, UNK
     Route: 048
  3. ASA [Concomitant]
     Dosage: 81 mg, QD
     Route: 048
  4. PROVIGIL [Concomitant]
     Dosage: 200 mg, QD
     Route: 048
  5. THYROXINE [Concomitant]
     Indication: HYPOTHYROIDISM
     Dosage: 50 ug, QD
     Route: 048
  6. VITAMIN D3 [Concomitant]
     Dosage: 1000 IU, QD
     Route: 048
  7. MULTIVITAMIN ^LAPPE^ [Concomitant]
  8. CALCIUM [Concomitant]
  9. FISH OIL [Concomitant]

REACTIONS (10)
  - Grand mal convulsion [Recovered/Resolved]
  - Tremor [Unknown]
  - Aphasia [Unknown]
  - Amnesia [Unknown]
  - Confusional state [Unknown]
  - Loss of consciousness [Unknown]
  - Convulsion [Unknown]
  - Muscle rigidity [Unknown]
  - Immune reconstitution inflammatory syndrome [Unknown]
  - Central nervous system lesion [Unknown]
